FAERS Safety Report 15775316 (Version 1)
Quarter: 2018Q4

REPORT INFORMATION
  Report Type: Spontaneous
  Country: US (occurrence: US)
  Receive Date: 20181231
  Receipt Date: 20181231
  Transmission Date: 20190205
  Serious: No
  Sender: FDA-Public Use
  Company Number: US-009507513-1812USA004541

PATIENT
  Age: 36 Year
  Sex: Male

DRUGS (4)
  1. PRINIVIL [Suspect]
     Active Substance: LISINOPRIL
     Indication: NEPHROTIC SYNDROME
     Route: 048
  2. ATORVASTATIN [Suspect]
     Active Substance: ATORVASTATIN
     Indication: NEPHROTIC SYNDROME
  3. ATORVASTATIN [Suspect]
     Active Substance: ATORVASTATIN
     Indication: STRONGYLOIDIASIS
  4. PRINIVIL [Suspect]
     Active Substance: LISINOPRIL
     Indication: STRONGYLOIDIASIS

REACTIONS (1)
  - Off label use [Unknown]
